FAERS Safety Report 6453149-6 (Version None)
Quarter: 2009Q4

REPORT INFORMATION
  Report Type: 
  Country: None (occurrence: None)
  Receive Date: 20091117
  Receipt Date: 20091105
  Transmission Date: 20100525
  Serious: Yes (Death)
  Sender: FDA-Public Use
  Company Number: DE-GDP-09406391

PATIENT
  Sex: Male

DRUGS (4)
  1. METVIX (METHYL AMINOLEVULINATE 16.8% [Suspect]
     Indication: ACTINIC KERATOSIS
     Dosage: (1 DF TOPICAL), ( 1 DF TOPICAL)
     Route: 061
     Dates: start: 20080101
  2. METVIX (METHYL AMINOLEVULINATE 16.8% [Suspect]
     Indication: ACTINIC KERATOSIS
     Dosage: (1 DF TOPICAL), ( 1 DF TOPICAL)
     Route: 061
     Dates: start: 20080617
  3. THYROID TAB [Concomitant]
  4. SELENIUM [Concomitant]

REACTIONS (1)
  - METASTASES TO LIVER [None]
